FAERS Safety Report 4546620-5 (Version None)
Quarter: 2005Q1

REPORT INFORMATION
  Report Type: 
  Country: None (occurrence: None)
  Receive Date: 20050103
  Receipt Date: 20041210
  Transmission Date: 20050727
  Serious: No
  Sender: FDA-Public Use
  Company Number: JP_041004963

PATIENT
  Age: 64 Year
  Sex: Female

DRUGS (5)
  1. EVISTA [Suspect]
     Indication: OSTEOPOROSIS
     Dosage: 60 MG/1 DAY
     Dates: start: 20040917, end: 20041120
  2. BONALON (ALENDRONIC ACID) [Concomitant]
  3. SELECTOL (CELIPROLOL HYDROCHLORIDE) [Concomitant]
  4. MERCAZOLE (THIAMAZOLE) [Concomitant]
  5. GASTROM (ECABET MONOSODIUM) [Concomitant]

REACTIONS (3)
  - ABDOMINAL PAIN UPPER [None]
  - GASTRIC ULCER [None]
  - HELICOBACTER PYLORI IDENTIFICATION TEST POSITIVE [None]
